FAERS Safety Report 9728017 (Version 1)
Quarter: 2013Q4

REPORT INFORMATION
  Report Type: Spontaneous
  Country: US (occurrence: None)
  Receive Date: 20131203
  Receipt Date: 20131203
  Transmission Date: 20140711
  Serious: Yes (Other)
  Sender: FDA-Public Use
  Company Number: None

PATIENT
  Age: 60 Year
  Sex: Female
  Weight: 57.61 kg

DRUGS (1)
  1. LOSARTAN POTASSIUM [Suspect]
     Indication: CHEST PAIN
     Dosage: 1 TAB
     Route: 048
     Dates: start: 20131111, end: 20131119

REACTIONS (3)
  - Product substitution issue [None]
  - Blood pressure increased [None]
  - Chest pain [None]
